FAERS Safety Report 23623818 (Version 3)
Quarter: 2024Q2

REPORT INFORMATION
  Report Type: Report from Study
  Country: US (occurrence: US)
  Receive Date: 20240312
  Receipt Date: 20240404
  Transmission Date: 20240716
  Serious: Yes (Hospitalization)
  Sender: FDA-Public Use
  Company Number: US-Eisai-EC-2024-160795

PATIENT
  Age: 73 Year
  Sex: Female

DRUGS (11)
  1. LENVIMA [Suspect]
     Active Substance: LENVATINIB
     Indication: Metastatic uterine cancer
     Route: 048
     Dates: start: 202401
  2. LENVIMA [Suspect]
     Active Substance: LENVATINIB
     Route: 048
     Dates: end: 20240315
  3. LENVIMA [Suspect]
     Active Substance: LENVATINIB
     Route: 048
     Dates: start: 20240329
  4. KEYTRUDA [Suspect]
     Active Substance: PEMBROLIZUMAB
     Indication: Metastatic uterine cancer
     Dosage: DOSE AND FREQUENCY UNKNOWN??100MG/4ML
     Route: 042
     Dates: end: 2024
  5. HYDROCHLOROTHIAZIDE [Concomitant]
     Active Substance: HYDROCHLOROTHIAZIDE
     Indication: Product used for unknown indication
     Dosage: FREQUENCY UNKNOWN
  6. HYDROCORTISONE [HYDROCORTISONE ACETATE;NEOMYCIN SULFATE] [Concomitant]
     Indication: Product used for unknown indication
     Dosage: 2.5%. DOSE AND FREQUENCY UNKNOWN
  7. LEVOTHYROXINE SODIUM [Concomitant]
     Active Substance: LEVOTHYROXINE SODIUM
     Indication: Product used for unknown indication
     Dosage: FREQUENCY UNKNOWN
  8. LOPERAMIDE HYDROCHLORIDE;NIFUROXAZIDE [Concomitant]
     Indication: Product used for unknown indication
     Dosage: FREQUENCY UNKNOWN
  9. ONDANSETRON [Concomitant]
     Active Substance: ONDANSETRON
     Indication: Product used for unknown indication
     Dosage: FREQUENCY UNKNOWN
  10. AMLODIPINE [Concomitant]
     Active Substance: AMLODIPINE BESYLATE
     Indication: Product used for unknown indication
     Dosage: FREQUENCY UNKNOWN
  11. LASIX [Concomitant]
     Active Substance: FUROSEMIDE
     Indication: Product used for unknown indication
     Dosage: FREQUENCY UNKNOWN

REACTIONS (12)
  - Cholecystitis [Not Recovered/Not Resolved]
  - Peripheral swelling [Not Recovered/Not Resolved]
  - Joint swelling [Not Recovered/Not Resolved]
  - Mobility decreased [Not Recovered/Not Resolved]
  - Somnolence [Not Recovered/Not Resolved]
  - Weight increased [Not Recovered/Not Resolved]
  - Decreased appetite [Not Recovered/Not Resolved]
  - Nausea [Not Recovered/Not Resolved]
  - Headache [Not Recovered/Not Resolved]
  - Blood pressure increased [Not Recovered/Not Resolved]
  - Cortisol abnormal [Unknown]
  - Fluid retention [Unknown]

NARRATIVE: CASE EVENT DATE: 20240101
